FAERS Safety Report 5152529-9 (Version None)
Quarter: 2006Q4

REPORT INFORMATION
  Report Type: 
  Country: None (occurrence: None)
  Receive Date: 20061116
  Receipt Date: 20061107
  Transmission Date: 20070319
  Serious: Yes (Hospitalization)
  Sender: FDA-Public Use
  Company Number: FR-ELI_LILLY_AND_COMPANY-FR200611001278

PATIENT
  Age: 73 Year
  Sex: Female
  Weight: 51 kg

DRUGS (10)
  1. GEMZAR [Suspect]
     Indication: METASTASES TO LIVER
     Dosage: 1200 MG, OTHER
     Route: 042
     Dates: start: 20060407, end: 20060414
  2. GLUCOR [Concomitant]
     Dosage: UNK, UNKNOWN
     Route: 065
  3. LERCAN [Concomitant]
     Dosage: UNK, UNKNOWN
     Route: 065
  4. APROVEL [Concomitant]
     Dosage: UNK, UNKNOWN
     Route: 065
  5. LASIX [Concomitant]
     Dosage: UNK, UNKNOWN
     Route: 065
  6. ADANCOR [Concomitant]
     Dosage: UNK, UNKNOWN
     Route: 065
  7. CRESTOR [Concomitant]
     Dosage: UNK, UNKNOWN
     Route: 065
  8. HEMIGOXINE NATIVELLE [Concomitant]
     Dosage: UNK, UNKNOWN
     Route: 065
  9. VASTAREL [Concomitant]
     Dosage: UNK, UNKNOWN
     Route: 065
  10. INSUMAN COMB ^HOECHST^ [Concomitant]
     Dosage: UNK, UNKNOWN
     Route: 065

REACTIONS (4)
  - GENERALISED ERYTHEMA [None]
  - PRURITUS [None]
  - RENAL FAILURE ACUTE [None]
  - URTICARIA [None]
